FAERS Safety Report 14193077 (Version 1)
Quarter: 2017Q4

REPORT INFORMATION
  Report Type: Spontaneous
  Country: US (occurrence: US)
  Receive Date: 20171115
  Receipt Date: 20171115
  Transmission Date: 20180321
  Serious: No
  Sender: FDA-Public Use
  Company Number: US-MYLANLABS-2017M1071963

PATIENT
  Sex: Female

DRUGS (2)
  1. LEVETIRACETAM EXTENDED-RELEASE TABLETS [Suspect]
     Active Substance: LEVETIRACETAM
     Dosage: 1000 MG AT BED TIME
     Dates: end: 201709
  2. LEVETIRACETAM EXTENDED-RELEASE TABLETS [Suspect]
     Active Substance: LEVETIRACETAM
     Indication: PRODUCT USED FOR UNKNOWN INDICATION
     Dosage: 500 MG AT BED TIME

REACTIONS (2)
  - Insomnia [Unknown]
  - Mood altered [Unknown]
